FAERS Safety Report 7043816-8 (Version None)
Quarter: 2010Q4

REPORT INFORMATION
  Report Type: 
  Country: None (occurrence: None)
  Receive Date: 20101012
  Receipt Date: 20101012
  Transmission Date: 20110411
  Serious: Yes (Other)
  Sender: FDA-Public Use
  Company Number: None

PATIENT
  Age: 66 Year
  Sex: Female
  Weight: 53.0709 kg

DRUGS (2)
  1. CIPROFLOXACIN [Suspect]
     Indication: URINARY TRACT INFECTION
     Dosage: ONE TABLET 2 X DAILY
     Dates: start: 20100927, end: 20101002
  2. NITROFURANTOIN MONOHYDRATE/MACROCRYSTALS [Concomitant]

REACTIONS (6)
  - ARTHRALGIA [None]
  - DISORIENTATION [None]
  - INFLUENZA LIKE ILLNESS [None]
  - LETHARGY [None]
  - MYALGIA [None]
  - PAIN [None]
